FAERS Safety Report 13179714 (Version 2)
Quarter: 2017Q2

REPORT INFORMATION
  Report Type: Spontaneous
  Country: US (occurrence: US)
  Receive Date: 20170202
  Receipt Date: 20170508
  Transmission Date: 20170830
  Serious: No
  Sender: FDA-Public Use
  Company Number: US-BAYER-2017-020243

PATIENT
  Age: 5 Year
  Sex: Male
  Weight: 27.21 kg

DRUGS (12)
  1. MIRALAX [Suspect]
     Active Substance: POLYETHYLENE GLYCOL 3350
     Indication: GASTROINTESTINAL DISORDER
     Dosage: 1 DF, PRN
     Route: 048
  2. CLARITIN [Concomitant]
     Active Substance: LORATADINE
     Indication: TOXIC SKIN ERUPTION
     Dosage: 1 DF, QD
     Route: 048
     Dates: start: 201701, end: 20170201
  3. BACTRIM [Concomitant]
     Active Substance: SULFAMETHOXAZOLE\TRIMETHOPRIM
  4. ONDANSETRON [Concomitant]
     Active Substance: ONDANSETRON
  5. DEXAMEDIS [DEXAMETHASONE] [Concomitant]
  6. METHOTREXATE. [Concomitant]
     Active Substance: METHOTREXATE
  7. MERCAPTOPURINE. [Concomitant]
     Active Substance: MERCAPTOPURINE
  8. CLARITIN [Concomitant]
     Active Substance: LORATADINE
     Indication: SKIN DISCOLOURATION
     Dosage: 2 DF, QD
     Route: 048
  9. MIRALAX [Suspect]
     Active Substance: POLYETHYLENE GLYCOL 3350
     Indication: GASTROINTESTINAL DISORDER
     Dosage: 1 DF, PRN
     Route: 048
     Dates: start: 201508, end: 201701
  10. VINCRISTINE [Concomitant]
     Active Substance: VINCRISTINE
  11. EPIPEN [Concomitant]
     Active Substance: EPINEPHRINE
  12. DELSYM [Concomitant]
     Active Substance: DEXTROMETHORPHAN
     Dosage: UNK

REACTIONS (1)
  - Drug administered to patient of inappropriate age [Unknown]
